FAERS Safety Report 7469154-7 (Version None)
Quarter: 2011Q2

REPORT INFORMATION
  Report Type: 
  Country: None (occurrence: None)
  Receive Date: 20110510
  Receipt Date: 20110426
  Transmission Date: 20111010
  Serious: Yes (Other)
  Sender: FDA-Public Use
  Company Number: FR-JNJFOC-20110302635

PATIENT
  Age: 36 Year
  Sex: Male

DRUGS (2)
  1. REMICADE [Suspect]
     Indication: COLITIS ULCERATIVE
     Route: 042
  2. REMICADE [Suspect]
     Route: 042

REACTIONS (7)
  - URTICARIA [None]
  - CHEST DISCOMFORT [None]
  - INFUSION RELATED REACTION [None]
  - OCULAR DISCOMFORT [None]
  - HOT FLUSH [None]
  - ERYTHEMA [None]
  - MALAISE [None]
